FAERS Safety Report 18382747 (Version 1)
Quarter: 2020Q4

REPORT INFORMATION
  Report Type: Spontaneous
  Country: US (occurrence: US)
  Receive Date: 20201014
  Receipt Date: 20201014
  Transmission Date: 20210114
  Serious: No
  Sender: FDA-Public Use
  Company Number: None

PATIENT
  Age: 52 Year
  Sex: Male

DRUGS (1)
  1. ISOVUE [Suspect]
     Active Substance: IOPAMIDOL
     Indication: ABDOMEN SCAN
     Dosage: ?          OTHER FREQUENCY:X 1;?
     Route: 042
     Dates: start: 20201013, end: 20201013

REACTIONS (1)
  - Contrast media reaction [None]

NARRATIVE: CASE EVENT DATE: 20201013
